FAERS Safety Report 17274500 (Version 2)
Quarter: 2020Q2

REPORT INFORMATION
  Report Type: Spontaneous
  Country: US (occurrence: US)
  Receive Date: 20200115
  Receipt Date: 20200414
  Transmission Date: 20200713
  Serious: No
  Sender: FDA-Public Use
  Company Number: US-SA-2020SA009643

PATIENT
  Age: 39 Year
  Sex: Female

DRUGS (2)
  1. AUBAGIO [Suspect]
     Active Substance: TERIFLUNOMIDE
     Indication: MULTIPLE SCLEROSIS
     Dosage: 14 MG, QD
     Route: 048
     Dates: start: 20191116
  2. AUBAGIO [Suspect]
     Active Substance: TERIFLUNOMIDE
     Dosage: 14 MG; QD
     Route: 048

REACTIONS (3)
  - Alopecia [Not Recovered/Not Resolved]
  - Diarrhoea [Unknown]
  - Product dose omission [Unknown]

NARRATIVE: CASE EVENT DATE: 20191225
